FAERS Safety Report 14341267 (Version 2)
Quarter: 2019Q1

REPORT INFORMATION
  Report Type: Spontaneous
  Country: GR (occurrence: GR)
  Receive Date: 20180102
  Receipt Date: 20190130
  Transmission Date: 20190417
  Serious: Yes (Other)
  Sender: FDA-Public Use
  Company Number: GR-ACCORD-062445

PATIENT
  Age: 78 Year
  Sex: Female

DRUGS (2)
  1. PACLITAXEL/PACLITAXEL LIPOSOME [Suspect]
     Active Substance: PACLITAXEL
     Indication: VULVAL CANCER METASTATIC
     Dosage: 1 DF, CYCLICAL
  2. CARBOPLATIN. [Suspect]
     Active Substance: CARBOPLATIN
     Indication: VULVAL CANCER METASTATIC
     Dosage: 1 DF, CYCLICAL

REACTIONS (3)
  - Thrombocytopenia [Recovered/Resolved]
  - Clostridium difficile infection [Recovered/Resolved]
  - Pseudomembranous colitis [Recovered/Resolved]
